FAERS Safety Report 11876205 (Version 2)
Quarter: 2016Q1

REPORT INFORMATION
  Report Type: Report from Study
  Country: US (occurrence: US)
  Receive Date: 20151229
  Receipt Date: 20160314
  Transmission Date: 20160526
  Serious: Yes (Hospitalization, Other)
  Sender: FDA-Public Use
  Company Number: US-GILEAD-2015-0189770

PATIENT
  Age: 77 Year
  Sex: Male
  Weight: 69.2 kg

DRUGS (4)
  1. FLOMAX [Concomitant]
     Active Substance: TAMSULOSIN HYDROCHLORIDE
  2. ENTOCORT [Concomitant]
     Active Substance: BUDESONIDE
  3. IDELALISIB [Suspect]
     Active Substance: IDELALISIB
     Indication: CHRONIC LYMPHOCYTIC LEUKAEMIA
     Dosage: 100 MG, BID
     Route: 048
     Dates: start: 20120530, end: 20151121
  4. COUMADIN [Concomitant]
     Active Substance: WARFARIN SODIUM

REACTIONS (1)
  - Clostridium difficile colitis [Recovered/Resolved]

NARRATIVE: CASE EVENT DATE: 20151121
